FAERS Safety Report 19381912 (Version 1)
Quarter: 2021Q2

REPORT INFORMATION
  Report Type: Spontaneous
  Country: US (occurrence: US)
  Receive Date: 20210607
  Receipt Date: 20210607
  Transmission Date: 20210717
  Serious: No
  Sender: FDA-Public Use
  Company Number: US-BRISTOL-MYERS SQUIBB COMPANY-BMS-2021-054040

PATIENT
  Age: 83 Year
  Sex: Female
  Weight: 77.1 kg

DRUGS (2)
  1. VITAMINS NOS [Concomitant]
     Active Substance: VITAMINS
     Indication: PRODUCT USED FOR UNKNOWN INDICATION
     Dosage: UNK UNK, QD
     Route: 065
  2. ELIQUIS [Suspect]
     Active Substance: APIXABAN
     Indication: CEREBROVASCULAR ACCIDENT PROPHYLAXIS
     Dosage: UNK UNK, BID
     Route: 048
     Dates: start: 201911

REACTIONS (8)
  - Fatigue [Unknown]
  - Arthritis [Unknown]
  - Diarrhoea [Unknown]
  - Body height decreased [Unknown]
  - Hypersensitivity [Unknown]
  - Dizziness [Unknown]
  - Anxiety [Unknown]
  - Cough [Unknown]
